FAERS Safety Report 4498743-7 (Version None)
Quarter: 2004Q3

REPORT INFORMATION
  Report Type: 
  Country: None (occurrence: None)
  Receive Date: 20040927
  Receipt Date: 20040617
  Transmission Date: 20050211
  Serious: No
  Sender: FDA-Public Use
  Company Number: USA040670459

PATIENT
  Age: 41 Year
  Sex: Female

DRUGS (3)
  1. STRATTERA [Suspect]
     Indication: ATTENTION DEFICIT/HYPERACTIVITY DISORDER
     Dosage: 40 MG/1 DAY
     Dates: start: 20040616
  2. PROZAC [Suspect]
     Indication: DEPRESSION
  3. EFFEXOR [Concomitant]

REACTIONS (11)
  - ASTHENIA [None]
  - CRYING [None]
  - DEPRESSED MOOD [None]
  - DRY MOUTH [None]
  - FEELING ABNORMAL [None]
  - INFLUENZA LIKE ILLNESS [None]
  - PAIN [None]
  - PHARYNGOLARYNGEAL PAIN [None]
  - RHINORRHOEA [None]
  - SOMNOLENCE [None]
  - STRESS SYMPTOMS [None]
